FAERS Safety Report 15949048 (Version 1)
Quarter: 2019Q1

REPORT INFORMATION
  Report Type: Spontaneous
  Country: US (occurrence: US)
  Receive Date: 20190211
  Receipt Date: 20190211
  Transmission Date: 20190417
  Serious: No
  Sender: FDA-Public Use
  Company Number: US-AUROBINDO-AUR-APL-2018-007751

PATIENT
  Age: 6 Year
  Sex: Female

DRUGS (2)
  1. AMOXICILLIN AND CLAVULANATEPOTASSIUMFORORALSUSPENSIONUSP600/42.9MG/5ML [Suspect]
     Active Substance: AMOXICILLIN\CLAVULANATE POTASSIUM
     Indication: PRODUCT USED FOR UNKNOWN INDICATION
     Dosage: 10 ML, TWO TIMES A DAY
     Route: 048
     Dates: start: 20180131
  2. AMOXICILLIN AND CLAVULANATEPOTASSIUMFORORALSUSPENSIONUSP600/42.9MG/5ML [Suspect]
     Active Substance: AMOXICILLIN\CLAVULANATE POTASSIUM
     Dosage: 10 ML, TWO TIMES A DAY
     Route: 048
     Dates: start: 20180131

REACTIONS (2)
  - Throat irritation [Unknown]
  - Product solubility abnormal [Unknown]

NARRATIVE: CASE EVENT DATE: 2018
